FAERS Safety Report 5446487-7 (Version None)
Quarter: 2007Q3

REPORT INFORMATION
  Report Type: 
  Country: None (occurrence: None)
  Receive Date: 20070907
  Receipt Date: 20070724
  Transmission Date: 20080115
  Serious: Yes (Hospitalization, Disabling)
  Sender: FDA-Public Use
  Company Number: DE-ELI_LILLY_AND_COMPANY-DE_040714044

PATIENT
  Age: 63 Year
  Sex: Male

DRUGS (5)
  1. FORTEO [Suspect]
     Indication: OSTEOPOROSIS
     Dosage: 20 UG, DAILY (1/D)
     Route: 058
     Dates: start: 20040301, end: 20040501
  2. FORTEO [Suspect]
     Dosage: UNK, UNKNOWN
     Route: 058
  3. CALCIUM [Concomitant]
     Indication: OSTEOPOROSIS
     Dosage: 500 MG, DAILY (1/D)
     Route: 048
  4. AZATHIOPRINE [Concomitant]
     Dosage: UNK, UNKNOWN
     Route: 065
     Dates: start: 20040201
  5. CORTISONE ACETATE TAB [Concomitant]
     Dosage: UNK, UNKNOWN
     Route: 048
     Dates: start: 20040201

REACTIONS (2)
  - DEEP VEIN THROMBOSIS [None]
  - PULMONARY FIBROSIS [None]
